FAERS Safety Report 13120328 (Version 1)
Quarter: 2017Q1

REPORT INFORMATION
  Report Type: Spontaneous
  Country: ZA (occurrence: ZA)
  Receive Date: 20170117
  Receipt Date: 20170117
  Transmission Date: 20170428
  Serious: Yes (Hospitalization)
  Sender: FDA-Public Use
  Company Number: ZA-GLENMARK PHARMACEUTICALS-2017GMK025788

PATIENT
  Age: 10 Year
  Sex: Female

DRUGS (3)
  1. FLUCONAZOLE. [Suspect]
     Active Substance: FLUCONAZOLE
     Dosage: 3 MG/KG, UNK
     Route: 065
  2. FLUCONAZOLE. [Suspect]
     Active Substance: FLUCONAZOLE
     Indication: CRYPTOCOCCOSIS
     Dosage: 15-25 MG/KG, UNK
     Route: 065
  3. AMPHOTERICIN B. [Suspect]
     Active Substance: AMPHOTERICIN B
     Indication: CRYPTOCOCCOSIS
     Dosage: 1 MG/KG, UNK
     Route: 065

REACTIONS (6)
  - Meningitis cryptococcal [Unknown]
  - Drug ineffective [Unknown]
  - Condition aggravated [Unknown]
  - Pulmonary mass [Unknown]
  - Nervous system disorder [Unknown]
  - Cryptococcosis [Unknown]
